FAERS Safety Report 21175384 (Version 1)
Quarter: 2022Q3

REPORT INFORMATION
  Report Type: Spontaneous
  Country: BE (occurrence: BE)
  Receive Date: 20220805
  Receipt Date: 20220805
  Transmission Date: 20221027
  Serious: Yes (Other)
  Sender: FDA-Public Use
  Company Number: None

PATIENT
  Age: 24 Year
  Sex: Female

DRUGS (12)
  1. ALPRAZOLAM [Suspect]
     Active Substance: ALPRAZOLAM
     Indication: Occupational exposure to product
     Dosage: UNK
     Route: 061
  2. LORMETAZEPAM [Suspect]
     Active Substance: LORMETAZEPAM
     Indication: Occupational exposure to product
     Dosage: UNK
     Route: 061
  3. BISOPROLOL [Suspect]
     Active Substance: BISOPROLOL
     Indication: Occupational exposure to product
     Dosage: AIRBORNE EXPOSURE DURING HER WORK AS A PHARMACY ASSISTANT, WHICH INVOLVED BREAKING AND CRUSHING DIFF
     Route: 061
  4. TETRAZEPAM [Suspect]
     Active Substance: TETRAZEPAM
     Indication: Occupational exposure to product
     Dosage: AIRBORNE EXPOSURE DURING HER WORK AS A PHARMACY ASSISTANT, WHICH INVOLVED BREAKING AND CRUSHING DIFF
     Route: 061
  5. METOPROLOL [Suspect]
     Active Substance: METOPROLOL
     Indication: Occupational exposure to product
     Dosage: AIRBORNE EXPOSURE DURING HER WORK AS A PHARMACY ASSISTANT, WHICH INVOLVED BREAKING AND CRUSHING DIFF
     Route: 061
  6. PROPRANOLOL [Suspect]
     Active Substance: PROPRANOLOL HYDROCHLORIDE
     Indication: Occupational exposure to product
     Dosage: AIRBORNE EXPOSURE DURING HER WORK AS A PHARMACY ASSISTANT, WHICH INVOLVED BREAKING AND CRUSHING DIFF
     Route: 061
  7. SOTALOL [Suspect]
     Active Substance: SOTALOL
     Indication: Occupational exposure to product
     Dosage: AIRBORNE EXPOSURE DURING HER WORK AS A PHARMACY ASSISTANT, WHICH INVOLVED BREAKING AND CRUSHING DIFF
     Route: 061
  8. ENALAPRIL [Suspect]
     Active Substance: ENALAPRIL
     Indication: Occupational exposure to product
     Dosage: AIRBORNE EXPOSURE DURING HER WORK AS A PHARMACY ASSISTANT, WHICH INVOLVED BREAKING AND CRUSHING DIFF
     Route: 061
  9. LISINOPRIL [Suspect]
     Active Substance: LISINOPRIL
     Indication: Product used for unknown indication
     Dosage: UNK
     Route: 061
  10. PERINDOPRIL [Suspect]
     Active Substance: PERINDOPRIL
     Indication: Occupational exposure to product
     Dosage: AIRBORNE EXPOSURE DURING HER WORK AS A PHARMACY ASSISTANT, WHICH INVOLVED BREAKING AND CRUSHING DIFF
     Route: 061
  11. CAPTOPRIL [Suspect]
     Active Substance: CAPTOPRIL
     Indication: Occupational exposure to product
     Dosage: UNK
     Route: 065
  12. HYDROCHLOROTHIAZIDE\LISINOPRIL [Suspect]
     Active Substance: HYDROCHLOROTHIAZIDE\LISINOPRIL
     Indication: Occupational exposure to product
     Dosage: AIRBORNE EXPOSURE DURING HER WORK AS A PHARMACY ASSISTANT, WHICH INVOLVED BREAKING AND CRUSHING DIFF
     Route: 065

REACTIONS (6)
  - Skin test positive [Unknown]
  - Dermatitis contact [Unknown]
  - Occupational exposure to product [Unknown]
  - Exposure via skin contact [Unknown]
  - Wrong technique in product usage process [Unknown]
  - Blepharitis [Unknown]
